FAERS Safety Report 7332697-0 (Version None)
Quarter: 2011Q1

REPORT INFORMATION
  Report Type: 
  Country: None (occurrence: None)
  Receive Date: 20110304
  Receipt Date: 20110221
  Transmission Date: 20110831
  Serious: Yes (Congenital Anomaly)
  Sender: FDA-Public Use
  Company Number: PHHY2011GB14517

PATIENT
  Sex: Female
  Weight: 3.46 kg

DRUGS (5)
  1. HYDROXOCOBALAMIN [Suspect]
     Dosage: MATERNAL DOSE: 3 DOSE FORMS MONTHLY
     Route: 064
     Dates: start: 20091216
  2. CO-CODAMOL [Suspect]
     Dosage: MATERNAL DOSE: 2 TABLETS AS NEEDED
     Route: 064
     Dates: start: 20090106
  3. FOLIC ACID [Suspect]
     Dosage: MATERNAL DOSE: ONE DOSE FORM ONCE DAILY
     Route: 064
     Dates: start: 20090501
  4. OMEPRAZOLE [Suspect]
     Dosage: MATERNAL DOSE: 20 MG DAILY
     Dates: start: 20081016
  5. LYRICA [Suspect]
     Dosage: MATERNAL DOSE: 2 CAPSULES TWICE DAILY
     Route: 064
     Dates: start: 20080815

REACTIONS (3)
  - HIP DYSPLASIA [None]
  - PELVIC DEFORMITY [None]
  - DRUG EXPOSURE DURING PREGNANCY [None]
